FAERS Safety Report 4471512-X (Version None)
Quarter: 2004Q4

REPORT INFORMATION
  Report Type: 
  Country: None (occurrence: None)
  Receive Date: 20041006
  Receipt Date: 20040922
  Transmission Date: 20050328
  Serious: Yes (Hospitalization)
  Sender: FDA-Public Use
  Company Number: CERZ-10673

PATIENT
  Age: 38 Year
  Sex: Female
  Weight: 53.5 kg

DRUGS (1)
  1. CEREZYME [Suspect]
     Indication: GAUCHER'S DISEASE
     Dosage: 3200 UNITS Q2WKS IV
     Route: 042
     Dates: start: 19970801

REACTIONS (6)
  - BURNS SECOND DEGREE [None]
  - BURNS THIRD DEGREE [None]
  - ORAL FUNGAL INFECTION [None]
  - PNEUMONIA [None]
  - SKIN GRAFT [None]
  - TRACHEAL DISORDER [None]
